FAERS Safety Report 6259137-7 (Version None)
Quarter: 2009Q3

REPORT INFORMATION
  Report Type: 
  Country: None (occurrence: None)
  Receive Date: 20090707
  Receipt Date: 20090623
  Transmission Date: 20100115
  Serious: Yes (Hospitalization)
  Sender: FDA-Public Use
  Company Number: JP-GENENTECH-285281

PATIENT
  Age: 86 Year
  Sex: Male

DRUGS (2)
  1. AVASTIN [Suspect]
     Indication: MACULAR DEGENERATION
     Dosage: 1.25 MG, QD
     Route: 031
     Dates: start: 20090204, end: 20090527
  2. ANTIBIOTIC NOS [Concomitant]
     Indication: DRUG USE FOR UNKNOWN INDICATION
     Dosage: UNK

REACTIONS (2)
  - PULMONARY ALVEOLAR HAEMORRHAGE [None]
  - RESPIRATORY FAILURE [None]
